FAERS Safety Report 4482963-1 (Version None)
Quarter: 2004Q4

REPORT INFORMATION
  Report Type: 
  Country: None (occurrence: None)
  Receive Date: 20041022
  Receipt Date: 20041013
  Transmission Date: 20050328
  Serious: Yes (Death, Life-Threatening, Hospitalization)
  Sender: FDA-Public Use
  Company Number: US-MERCK-0410USA02119

PATIENT
  Age: 78 Year
  Sex: Female

DRUGS (6)
  1. VIOXX [Suspect]
     Indication: ARTHRITIS
     Route: 048
     Dates: start: 20000101, end: 20040527
  2. ENDURONYL [Concomitant]
     Route: 065
  3. [THERAPY UNSPECIFIED] [Concomitant]
     Indication: RADIOTHERAPY
     Route: 065
  4. ZOFRAN [Concomitant]
     Route: 065
  5. FLUOROURACIL [Concomitant]
     Route: 065
  6. MITOMYCIN [Concomitant]
     Route: 065

REACTIONS (2)
  - CARDIAC ARREST [None]
  - SUDDEN CARDIAC DEATH [None]
